FAERS Safety Report 11036657 (Version 2)
Quarter: 2015Q2

REPORT INFORMATION
  Report Type: Spontaneous
  Country: JP (occurrence: JP)
  Receive Date: 20150416
  Receipt Date: 20150518
  Transmission Date: 20150821
  Serious: Yes (Disabling, Other)
  Sender: FDA-Public Use
  Company Number: JP-009507513-1501JPN001942

PATIENT
  Age: 65 Year
  Sex: Female

DRUGS (4)
  1. DEPAKENE [Concomitant]
     Active Substance: VALPROIC ACID
     Indication: EPILEPSY
     Dosage: 200 MG TWICE A DAY
     Route: 048
     Dates: start: 201412
  2. DEPAKENE [Concomitant]
     Active Substance: VALPROIC ACID
     Indication: PERSONALITY DISORDER
  3. DEPAKENE [Concomitant]
     Active Substance: VALPROIC ACID
     Indication: ABNORMAL BEHAVIOUR
  4. BELSOMRA [Suspect]
     Active Substance: SUVOREXANT
     Indication: INSOMNIA
     Dosage: 20 MG ONCE A DAY
     Route: 048
     Dates: start: 201412, end: 201412

REACTIONS (5)
  - Hallucination, visual [Recovered/Resolved]
  - Delirium [Recovered/Resolved]
  - Fear [Unknown]
  - Nightmare [Unknown]
  - Overdose [Unknown]

NARRATIVE: CASE EVENT DATE: 201412
